FAERS Safety Report 5152907-8 (Version None)
Quarter: 2006Q4

REPORT INFORMATION
  Report Type: 
  Country: None (occurrence: None)
  Receive Date: 20061113
  Receipt Date: 20061113
  Transmission Date: 20070319
  Serious: Yes (Hospitalization)
  Sender: FDA-Public Use
  Company Number: None

PATIENT
  Sex: Male
  Weight: 65.318 kg

DRUGS (2)
  1. CISPLATIN [Suspect]
     Indication: NEOPLASM MALIGNANT
     Dosage: 55 MG IV/WEEKLY
     Route: 042
     Dates: start: 20061017
  2. ERBITUX [Suspect]
     Indication: NEOPLASM MALIGNANT
     Dosage: 458 MG IV/WEEKLY
     Route: 042
     Dates: start: 20061017

REACTIONS (1)
  - NAUSEA [None]
